FAERS Safety Report 5545323-8 (Version None)
Quarter: 2007Q4

REPORT INFORMATION
  Report Type: 
  Country: None (occurrence: None)
  Receive Date: 20071211
  Receipt Date: 20071129
  Transmission Date: 20080405
  Serious: Yes (Hospitalization, Other)
  Sender: FDA-Public Use
  Company Number: US-JNJFOC-20071200714

PATIENT
  Sex: Female
  Weight: 99.79 kg

DRUGS (7)
  1. DURAGESIC-100 [Suspect]
     Indication: BACK PAIN
     Route: 062
  2. DURAGESIC-100 [Suspect]
     Indication: ARTHRALGIA
     Route: 062
  3. UNSPECIFIED ANTIBIOTICS [Suspect]
     Indication: INFECTION
     Route: 042
  4. ESTRADIOL [Concomitant]
     Indication: HORMONE REPLACEMENT THERAPY
     Route: 048
  5. ZOLOFT [Concomitant]
     Indication: DEPRESSION
     Route: 048
  6. FLURAZEPAM [Concomitant]
     Indication: SLEEP DISORDER
     Route: 048
  7. ANTI-DEPRESSANT [Concomitant]
     Indication: DEPRESSION
     Route: 048

REACTIONS (11)
  - BONE PAIN [None]
  - BREAKTHROUGH PAIN [None]
  - CALCINOSIS [None]
  - DRUG ADMINISTERED AT INAPPROPRIATE SITE [None]
  - HYPERTENSION [None]
  - MUSCLE SPASMS [None]
  - SKIN DISORDER [None]
  - STAPHYLOCOCCAL INFECTION [None]
  - TOOTH LOSS [None]
  - UPPER LIMB FRACTURE [None]
  - WRONG TECHNIQUE IN DRUG USAGE PROCESS [None]
